FAERS Safety Report 6044602-8 (Version None)
Quarter: 2009Q1

REPORT INFORMATION
  Report Type: 
  Country: None (occurrence: None)
  Receive Date: 20090120
  Receipt Date: 20090107
  Transmission Date: 20090719
  Serious: Yes (Hospitalization)
  Sender: FDA-Public Use
  Company Number: US-BIOGENIDEC-2008BI030158

PATIENT
  Age: 34 Year
  Sex: Female

DRUGS (5)
  1. TYSABRI [Suspect]
     Indication: MULTIPLE SCLEROSIS
     Route: 042
     Dates: start: 20080915
  2. BACLOFEN [Concomitant]
  3. NEURONTIN [Concomitant]
  4. HYDROCODON [Concomitant]
  5. LYRICA [Concomitant]

REACTIONS (7)
  - ABDOMINAL PAIN [None]
  - BACK PAIN [None]
  - BLINDNESS UNILATERAL [None]
  - BONE PAIN [None]
  - MULTIPLE SCLEROSIS RELAPSE [None]
  - MUSCLE SPASMS [None]
  - URINARY TRACT INFECTION [None]
